FAERS Safety Report 10184750 (Version 2)
Quarter: 2014Q4

REPORT INFORMATION
  Report Type: Spontaneous
  Country: GB (occurrence: None)
  Receive Date: 20140519
  Receipt Date: 20141020
  Transmission Date: 20150528
  Serious: Yes (Hospitalization)
  Sender: FDA-Public Use
  Company Number: GB2014K1887SPO

PATIENT
  Age: 79 Year
  Sex: Female
  Weight: 82 kg

DRUGS (17)
  1. INDAPAMIDE. [Suspect]
     Active Substance: INDAPAMIDE
     Indication: HYPERTENSION
     Route: 048
     Dates: start: 20140407, end: 20140421
  2. DICLOFENAC DIETHYLAMINE (DICLOFENAC) [Concomitant]
  3. PARACETAMOL (PARACETAMOL) [Concomitant]
     Active Substance: ACETAMINOPHEN
  4. SAXAGLIPTIN (SAXAGLIPTIN) [Concomitant]
  5. TRIMETHOPRIM (TRIMETHOPRIM) [Concomitant]
     Active Substance: TRIMETHOPRIM
  6. LOPERAMIDE (LOPERAMIDE) [Concomitant]
     Active Substance: LOPERAMIDE
  7. LANSOPRAZOLE. [Suspect]
     Active Substance: LANSOPRAZOLE
     Indication: GASTROOESOPHAGEAL REFLUX PROPHYLAXIS
     Route: 048
     Dates: end: 20140422
  8. HYDROXOCOBALAMIN (VITAMIN B SUBSTANCES) [Concomitant]
  9. ATORVASTATIN (ATORVASTATIN) [Concomitant]
     Active Substance: ATORVASTATIN
  10. CYCLIZINE (CYCLIZINE) [Concomitant]
  11. GAVISCON ADVANCE (POTASSIUM BICARBONATE, SODIUM ALGINATE) [Concomitant]
  12. METFORMIN [Concomitant]
     Active Substance: METFORMIN HYDROCHLORIDE
  13. PREDNISOLONE (PREDNISOLONE) [Concomitant]
     Active Substance: PREDNISOLONE
  14. LISINOPRIL. [Suspect]
     Active Substance: LISINOPRIL
     Indication: HYPERTENSION
     Route: 048
     Dates: start: 2009, end: 20140422
  15. FERROUS FUMARATE (IRON) [Concomitant]
  16. SERTRALINE [Suspect]
     Active Substance: SERTRALINE HYDROCHLORIDE
     Indication: DEPRESSION
     Route: 048
     Dates: start: 20140417, end: 20140422
  17. GLIPIZIDE (GLIPIZIDE) [Concomitant]
     Active Substance: GLIPIZIDE

REACTIONS (5)
  - Confusional state [None]
  - Hyponatraemia [None]
  - Somnolence [None]
  - Inappropriate antidiuretic hormone secretion [None]
  - Nausea [None]

NARRATIVE: CASE EVENT DATE: 20140421
